FAERS Safety Report 7305966-8 (Version None)
Quarter: 2011Q1

REPORT INFORMATION
  Report Type: 
  Country: None (occurrence: None)
  Receive Date: 20110222
  Receipt Date: 20110214
  Transmission Date: 20110831
  Serious: Yes (Other)
  Sender: FDA-Public Use
  Company Number: DE-AMGEN-DEUSP2011005073

PATIENT
  Age: 72 Year
  Sex: Female
  Weight: 74 kg

DRUGS (14)
  1. THYROXIN [Concomitant]
     Dosage: UNK UNK, QD
  2. ATACAND [Concomitant]
     Dosage: UNK UNK, QD
     Route: 048
  3. NEPHROTRANS [Concomitant]
     Dosage: UNK UNK, BID
  4. TOREM                              /01036501/ [Concomitant]
     Dosage: UNK UNK, BID
  5. ONE ALPHA [Concomitant]
     Dosage: 0.5 A?G, QD
  6. ULCOGANT                           /00434701/ [Concomitant]
     Dosage: UNK UNK, BID
  7. ARANESP [Suspect]
     Indication: DIALYSIS
     Dosage: 240 A?G, QWK
     Route: 042
     Dates: start: 20100801
  8. PANTOPRAZOL                        /01263202/ [Concomitant]
     Dosage: 40 MG, QD
  9. ARANESP [Suspect]
     Dosage: UNK
     Dates: start: 20100301, end: 20100401
  10. ARANESP [Suspect]
     Dosage: UNK
  11. METOPROLOL SUCCINATE [Concomitant]
     Dosage: 23.75 MG, BID
  12. CINACALCET HYDROCHLORIDE [Concomitant]
     Dosage: 30 MG, QD
  13. AMLODIPINE BESYLATE [Concomitant]
     Dosage: 10 MG, QD
  14. KALINOR                            /00031402/ [Concomitant]
     Dosage: UNK UNK, BID

REACTIONS (3)
  - APLASIA PURE RED CELL [None]
  - HAEMOGLOBIN DECREASED [None]
  - DRUG INEFFECTIVE [None]
